FAERS Safety Report 6992530-3 (Version None)
Quarter: 2010Q3

REPORT INFORMATION
  Report Type: 
  Country: None (occurrence: None)
  Receive Date: 20100917
  Receipt Date: 20100913
  Transmission Date: 20110219
  Serious: Yes (Hospitalization)
  Sender: FDA-Public Use
  Company Number: US-ROCHE-698629

PATIENT
  Sex: Female
  Weight: 92.6 kg

DRUGS (13)
  1. BEVACIZUMAB [Suspect]
     Indication: GLIOBLASTOMA
     Dosage: LAST DOSE ON 05 APRIL 2010
     Route: 065
     Dates: start: 20090908
  2. ERLOTINIB HYDROCHLORIDE [Suspect]
     Indication: GLIOBLASTOMA
     Route: 065
     Dates: start: 20090831, end: 20100406
  3. TEMODAR [Suspect]
     Indication: GLIOBLASTOMA
     Route: 065
     Dates: start: 20090831, end: 20100315
  4. LISINOPRIL [Concomitant]
     Dates: start: 19980101
  5. HYDROCHLOROTHIAZIDE [Concomitant]
     Dates: start: 20090701
  6. MELATONIN [Concomitant]
     Dates: start: 20090901
  7. PRILOSEC [Concomitant]
     Dates: start: 20091124
  8. BACTRIM [Concomitant]
     Dates: start: 20091204
  9. NORCO [Concomitant]
     Dates: start: 20091104
  10. MINOCYCLINE HCL [Concomitant]
     Dates: start: 20091215
  11. ZOFRAN [Concomitant]
     Dates: start: 20090831
  12. PROZAC [Concomitant]
     Dates: start: 20090829
  13. CLINDAMYCIN [Concomitant]
     Dosage: REPORTED AS CLINDAMYCIN GEL
     Dates: start: 20090921

REACTIONS (7)
  - ABDOMINAL PAIN [None]
  - BACK PAIN [None]
  - CANDIDIASIS [None]
  - CONVULSION [None]
  - DEHYDRATION [None]
  - DEVICE RELATED INFECTION [None]
  - PANCREATITIS [None]
